FAERS Safety Report 6008173-4 (Version None)
Quarter: 2008Q4

REPORT INFORMATION
  Report Type: 
  Country: None (occurrence: None)
  Receive Date: 20081217
  Receipt Date: 20080729
  Transmission Date: 20090506
  Serious: No
  Sender: FDA-Public Use
  Company Number: US-ASTRAZENECA-2008UW14899

PATIENT
  Age: 82 Year
  Sex: Male
  Weight: 72.6 kg

DRUGS (12)
  1. CRESTOR [Suspect]
     Indication: BLOOD CHOLESTEROL INCREASED
     Dosage: 1/2 OF 10 MG TABLET DAILY
     Route: 048
  2. CRESTOR [Suspect]
     Dosage: 1/2 OF 10 MG TABLET DAILY
     Route: 048
  3. PRILOSEC [Concomitant]
     Route: 048
  4. ENALAPRIL MALEATE [Concomitant]
  5. PRAZSOIN HCL [Concomitant]
  6. ASPIRIN [Concomitant]
     Dosage: 81 MWF
  7. FISH OIL [Concomitant]
  8. VITAMINS [Concomitant]
  9. PSYLLIUM [Concomitant]
  10. SAW PALMETTO [Concomitant]
  11. COENZYME Q10 [Concomitant]
  12. GARLIC [Concomitant]

REACTIONS (5)
  - ANOREXIA [None]
  - EPISTAXIS [None]
  - HYPOAESTHESIA FACIAL [None]
  - MUSCLE SPASMS [None]
  - WEIGHT DECREASED [None]
